FAERS Safety Report 9320370 (Version 1)
Quarter: 2013Q2

REPORT INFORMATION
  Report Type: Spontaneous
  Country: ES (occurrence: ES)
  Receive Date: 20130530
  Receipt Date: 20130530
  Transmission Date: 20140414
  Serious: Yes (Other)
  Sender: FDA-Public Use
  Company Number: ES-ELI_LILLY_AND_COMPANY-ES201008006533

PATIENT
  Sex: Female
  Weight: 56 kg

DRUGS (6)
  1. FORSTEO [Suspect]
     Indication: OSTEOPOROSIS
     Dosage: 20 UG, DAILY (1/D)
     Route: 058
     Dates: start: 20091019
  2. PREVENCOR [Concomitant]
     Indication: BLOOD CHOLESTEROL
     Dosage: UNK, DAILY (1/D)
     Route: 048
  3. FABROVEN [Concomitant]
     Indication: ANGIOPATHY
     Dosage: UNK, 2/D
     Route: 048
  4. LEXATIN [Concomitant]
     Indication: TACHYCARDIA
     Dosage: UNK, DAILY (1/D)
     Route: 048
  5. NATECAL [Concomitant]
     Dosage: UNK, DAILY (1/D)
     Route: 048
  6. ZOLPIDEM [Concomitant]
     Indication: SLEEP DISORDER
     Dosage: UNK, DAILY (1/D)
     Route: 048

REACTIONS (1)
  - Haematological malignancy [Unknown]
